FAERS Safety Report 10398004 (Version 1)
Quarter: 2014Q3

REPORT INFORMATION
  Report Type: Spontaneous
  Country: US (occurrence: US)
  Receive Date: 20140821
  Receipt Date: 20140821
  Transmission Date: 20150326
  Serious: Yes (Hospitalization)
  Sender: FDA-Public Use
  Company Number: US-BRISTOL-MYERS SQUIBB COMPANY-21315924

PATIENT
  Age: 27 Year
  Sex: Male

DRUGS (3)
  1. RITONAVIR [Concomitant]
     Active Substance: RITONAVIR
  2. REYATAZ [Suspect]
     Active Substance: ATAZANAVIR SULFATE
  3. TRUVADA [Concomitant]
     Active Substance: EMTRICITABINE\TENOFOVIR DISOPROXIL FUMARATE

REACTIONS (1)
  - Guillain-Barre syndrome [Unknown]
